FAERS Safety Report 6963865-5 (Version None)
Quarter: 2010Q3

REPORT INFORMATION
  Report Type: 
  Country: None (occurrence: None)
  Receive Date: 20100830
  Receipt Date: 20100818
  Transmission Date: 20110219
  Serious: Yes (Life-Threatening, Hospitalization)
  Sender: FDA-Public Use
  Company Number: GB-1166970

PATIENT
  Age: 6 Year
  Sex: Female

DRUGS (4)
  1. IOPIDINE [Suspect]
     Indication: VASOCONSTRICTION
     Dosage: 1 GTT; OPHTHALMIC
     Route: 047
     Dates: start: 20080801, end: 20080801
  2. PROPFOL [Concomitant]
  3. REMIFENTANIL [Concomitant]
  4. GLYCOPYRROLATE [Concomitant]

REACTIONS (6)
  - BLOOD PRESSURE INCREASED [None]
  - DRUG INTERACTION [None]
  - HEART RATE DECREASED [None]
  - PALLOR [None]
  - PULMONARY OEDEMA [None]
  - SOMNOLENCE [None]
